FAERS Safety Report 7968423-1 (Version None)
Quarter: 2011Q4

REPORT INFORMATION
  Report Type: 
  Country: None (occurrence: None)
  Receive Date: 20111209
  Receipt Date: 20111202
  Transmission Date: 20120403
  Serious: Yes (Hospitalization, Other)
  Sender: FDA-Public Use
  Company Number: US-ABBOTT-11P-163-0852050-00

PATIENT
  Sex: Female
  Weight: 73.548 kg

DRUGS (5)
  1. METHOTREXATE [Concomitant]
     Indication: PRODUCT USED FOR UNKNOWN INDICATION
  2. HUMIRA [Suspect]
     Indication: RHEUMATOID ARTHRITIS
     Route: 058
     Dates: start: 20050101, end: 20081201
  3. PLAQUENIL [Concomitant]
     Indication: PRODUCT USED FOR UNKNOWN INDICATION
  4. PREDNISONE [Concomitant]
     Indication: PRODUCT USED FOR UNKNOWN INDICATION
  5. HUMIRA [Suspect]
     Indication: SCLERODERMA

REACTIONS (7)
  - RHEUMATOID ARTHRITIS [None]
  - METASTASES TO LIVER [None]
  - RETRACTED NIPPLE [None]
  - METASTASES TO LYMPH NODES [None]
  - BREAST CANCER [None]
  - FEELING HOT [None]
  - ARTHRITIS [None]
